FAERS Safety Report 22152121 (Version 1)
Quarter: 2023Q1

REPORT INFORMATION
  Report Type: Spontaneous
  Country: US (occurrence: None)
  Receive Date: 20230328
  Receipt Date: 20230328
  Transmission Date: 20230417
  Serious: No
  Sender: FDA-Public Use
  Company Number: None

PATIENT
  Age: 73 Year
  Sex: Female
  Weight: 58.79 kg

DRUGS (29)
  1. LENALIDOMIDE [Suspect]
     Active Substance: LENALIDOMIDE
     Indication: Plasma cell myeloma
     Dosage: 10MG 14D ON  7D OFF ORAL?
     Route: 048
  2. ACETAMINOPHEN [Concomitant]
     Active Substance: ACETAMINOPHEN
  3. ACYCLOVIR [Concomitant]
     Active Substance: ACYCLOVIR
  4. ASPIRIN [Concomitant]
     Active Substance: ASPIRIN
  5. BENADRYL [Concomitant]
     Active Substance: DIPHENHYDRAMINE HYDROCHLORIDE
  6. CARVEDILOL [Concomitant]
     Active Substance: CARVEDILOL
  7. MINERALS\VITAMINS [Concomitant]
     Active Substance: MINERALS\VITAMINS
  8. DARZALEX [Concomitant]
     Active Substance: DARATUMUMAB
  9. DEXAMETHASONE [Concomitant]
     Active Substance: DEXAMETHASONE
  10. DICLOFENAC [Concomitant]
     Active Substance: DICLOFENAC
  11. GABAPENTIN [Concomitant]
     Active Substance: GABAPENTIN
  12. HYDRALAZINE [Concomitant]
     Active Substance: HYDRALAZINE HYDROCHLORIDE
  13. NORCO [Concomitant]
     Active Substance: ACETAMINOPHEN\HYDROCODONE BITARTRATE
  14. LOSARTAN [Concomitant]
     Active Substance: LOSARTAN
  15. MAGOX [Concomitant]
  16. MEGASE ES [Concomitant]
  17. MONTELUKAST [Concomitant]
     Active Substance: MONTELUKAST SODIUM
  18. NIFEDIPINE [Concomitant]
     Active Substance: NIFEDIPINE
  19. ONDANSETRON [Concomitant]
     Active Substance: ONDANSETRON
  20. PANTOPRAZOLE [Concomitant]
     Active Substance: PANTOPRAZOLE
  21. PROBIOTICS NOS [Concomitant]
     Active Substance: PROBIOTICS NOS
  22. RESTORIL [Concomitant]
     Active Substance: TEMAZEPAM
  23. SIMVASTATIN [Concomitant]
     Active Substance: SIMVASTATIN
  24. SYNTHROID [Concomitant]
     Active Substance: LEVOTHYROXINE SODIUM
  25. VITAMIN B12 [Concomitant]
     Active Substance: CYANOCOBALAMIN
  26. VITAMIN C [Concomitant]
     Active Substance: ASCORBIC ACID
  27. VITAMIN D [Concomitant]
     Active Substance: VITAMIN D NOS
  28. XYZAL ALLERGY [Concomitant]
  29. ZARXIO [Concomitant]
     Active Substance: FILGRASTIM-SNDZ

REACTIONS (1)
  - White blood cell count decreased [None]
